FAERS Safety Report 9469449 (Version 3)
Quarter: 2014Q1

REPORT INFORMATION
  Report Type: Spontaneous
  Country: US (occurrence: US)
  Receive Date: 20130822
  Receipt Date: 20140225
  Transmission Date: 20141002
  Serious: No
  Sender: FDA-Public Use
  Company Number: US-B.I. PHARMACEUTICALS,INC./RIDGEFIELD-2013-BI-24871BP

PATIENT
  Age: 62 Year
  Sex: Female
  Weight: 94 kg

DRUGS (16)
  1. SPIRIVA [Suspect]
     Indication: CHRONIC OBSTRUCTIVE PULMONARY DISEASE
     Dosage: 18 MCG
     Route: 055
     Dates: start: 201308
  2. SPIRIVA [Suspect]
     Route: 055
     Dates: start: 20130807
  3. ISOSORBIDE [Concomitant]
     Indication: HYPERTENSION
     Dosage: 30 MG
     Route: 048
  4. VITAMIN D 3 [Concomitant]
     Route: 048
  5. AMLODIPINE [Concomitant]
     Indication: HYPERTENSION
     Dosage: 5 MG
     Route: 048
  6. MAGNESIUM [Concomitant]
     Route: 048
  7. LIPITOR [Concomitant]
     Indication: BLOOD CHOLESTEROL INCREASED
     Dosage: 40 MG
     Route: 048
  8. NITROSTAT [Concomitant]
     Indication: CHEST PAIN
     Route: 065
  9. NASONEX [Concomitant]
     Dosage: (NASAL SPRAY)
     Route: 045
  10. BENICAR [Concomitant]
     Indication: HYPERTENSION
     Dosage: 40 MG
     Route: 048
  11. KLOR CON POWDER [Concomitant]
     Dosage: 20 MEQ
     Route: 048
  12. CARVEDILOL [Concomitant]
     Indication: HYPERTENSION
     Dosage: 50 MG
     Route: 048
  13. EFFIENT [Concomitant]
     Indication: STENT PLACEMENT
     Dosage: 10 MG
     Route: 048
  14. ALBUTEROL MDI [Concomitant]
     Indication: CHRONIC OBSTRUCTIVE PULMONARY DISEASE
     Route: 055
  15. NEXIUM [Concomitant]
     Indication: GASTROOESOPHAGEAL REFLUX DISEASE
     Dosage: 40 MG
     Route: 048
  16. ASPIRIN [Concomitant]
     Dosage: 81 MG
     Route: 048

REACTIONS (3)
  - Dyspnoea [Not Recovered/Not Resolved]
  - Dyspnoea [Recovered/Resolved]
  - Drug ineffective [Not Recovered/Not Resolved]
